FAERS Safety Report 16979509 (Version 2)
Quarter: 2019Q4

REPORT INFORMATION
  Report Type: Report from Study
  Country: BR (occurrence: BR)
  Receive Date: 20191031
  Receipt Date: 20191223
  Transmission Date: 20200122
  Serious: Yes (Other)
  Sender: FDA-Public Use
  Company Number: BR-UCBSA-2019045625

PATIENT
  Age: 53 Year
  Sex: Female
  Weight: 67 kg

DRUGS (11)
  1. CALCIUM CARBONATE W/VITAMIN D [CALCIUM CARBONATE;COLECALCIFEROL] [Concomitant]
     Active Substance: CALCIUM CARBONATE\CHOLECALCIFEROL
     Indication: PRODUCT USED FOR UNKNOWN INDICATION
     Dosage: 1 DOSAGE FORM, ONCE DAILY (QD)
     Route: 048
     Dates: start: 2006
  2. NITROFURANTOIN. [Concomitant]
     Active Substance: NITROFURANTOIN
     Indication: URINARY TRACT INFECTION
     Dosage: 100 MILLIGRAM, EV 2 DAYS (QOD)
     Route: 048
     Dates: start: 201906
  3. RANITIDINA [RANITIDINE] [Concomitant]
     Active Substance: RANITIDINE
     Indication: ABDOMINAL DISCOMFORT
     Dosage: 150 MILLIGRAM, 2X/DAY (BID)
     Route: 048
     Dates: start: 2013
  4. ADDERA D3 [Concomitant]
     Active Substance: CHOLECALCIFEROL
     Indication: BONE DISORDER
     Dosage: 2000 MICROLITER, ONCE DAILY (QD)
     Route: 048
     Dates: start: 2015
  5. METHOTREXATO [METHOTREXATE] [Concomitant]
     Indication: RHEUMATOID ARTHRITIS
     Dosage: 2.6 MILLIGRAM, 6 TABLETS PER WEEK
     Route: 048
     Dates: start: 2006
  6. LEVOTIROXINA [LEVOTHYROXINE SODIUM] [Concomitant]
     Indication: THYROIDECTOMY
     Dosage: 125 MILLIGRAM, ONCE DAILY (QD)
     Route: 048
     Dates: start: 2012
  7. LOSARTAN. [Concomitant]
     Active Substance: LOSARTAN
     Indication: HYPERTENSION
     Dosage: 50 MILLIGRAM, UNK
     Route: 048
  8. FOLIC ACID. [Concomitant]
     Active Substance: FOLIC ACID
     Indication: ANAEMIA
     Dosage: 5 MILLIGRAM, UNK
     Route: 048
     Dates: start: 2004
  9. CERTOLIZUMAB PEGOL RA [Suspect]
     Active Substance: CERTOLIZUMAB PEGOL
     Indication: RHEUMATOID ARTHRITIS
     Dosage: 200 MILLIGRAM, EV 2 WEEKS(QOW)
     Route: 058
     Dates: start: 201603
  10. ATENOLOL. [Concomitant]
     Active Substance: ATENOLOL
     Indication: HYPERTENSION
     Dosage: 50 MILLIGRAM, ONCE DAILY (QD)
     Route: 048
     Dates: start: 2012
  11. PREDNISONA [Concomitant]
     Active Substance: PREDNISONE
     Indication: RHEUMATOID ARTHRITIS
     Dosage: 5MG-1 AND A HALF TABLET ONCE A DAY
     Route: 048
     Dates: start: 2006

REACTIONS (5)
  - Nasal disorder [Unknown]
  - Nasal septum deviation [Unknown]
  - Injection site haemorrhage [Unknown]
  - Urinary tract infection [Not Recovered/Not Resolved]
  - Needle issue [Unknown]

NARRATIVE: CASE EVENT DATE: 201904
